FAERS Safety Report 4377281-6 (Version None)
Quarter: 2004Q2

REPORT INFORMATION
  Report Type: 
  Country: None (occurrence: None)
  Receive Date: 20040615
  Receipt Date: 20040603
  Transmission Date: 20050107
  Serious: Yes (Life-Threatening, Other)
  Sender: FDA-Public Use
  Company Number: JP-JNJFOC-20040506907

PATIENT
  Sex: Male
  Weight: 50 kg

DRUGS (4)
  1. REMICADE [Suspect]
     Route: 041
     Dates: start: 20040420
  2. REMICADE [Suspect]
     Indication: RHEUMATOID ARTHRITIS
     Route: 041
     Dates: start: 20040420
  3. RHEUMATREX [Suspect]
     Indication: DRUG USE FOR UNKNOWN INDICATION
     Route: 065
  4. INH [Concomitant]
     Indication: PROPHYLAXIS
     Route: 065

REACTIONS (12)
  - ACUTE MYOCARDIAL INFARCTION [None]
  - ANOREXIA [None]
  - BODY TEMPERATURE INCREASED [None]
  - CARDIAC FAILURE [None]
  - COUGH [None]
  - DRUG INTERACTION [None]
  - GENERAL PHYSICAL HEALTH DETERIORATION [None]
  - HYPOXIA [None]
  - INTERSTITIAL LUNG DISEASE [None]
  - LISTLESS [None]
  - PNEUMONIA BACTERIAL [None]
  - PNEUMONIA FUNGAL [None]
